FAERS Safety Report 7779243-5 (Version None)
Quarter: 2011Q3

REPORT INFORMATION
  Report Type: 
  Country: None (occurrence: None)
  Receive Date: 20110926
  Receipt Date: 20110916
  Transmission Date: 20111222
  Serious: Yes (Hospitalization)
  Sender: FDA-Public Use
  Company Number: US-ASTRAZENECA-2011SE56094

PATIENT
  Age: 37 Year
  Sex: Female

DRUGS (4)
  1. YAZ [Concomitant]
     Indication: CONTRACEPTION
  2. TRILEPTAL [Concomitant]
  3. SEROQUEL [Suspect]
     Route: 048
  4. SEROQUEL [Suspect]
     Indication: BIPOLAR DISORDER
     Route: 048
     Dates: start: 20061018

REACTIONS (3)
  - POST-TRAUMATIC STRESS DISORDER [None]
  - PREMENSTRUAL SYNDROME [None]
  - AFFECTIVE DISORDER [None]
